FAERS Safety Report 8264991-3 (Version None)
Quarter: 2012Q2

REPORT INFORMATION
  Report Type: 
  Country: None (occurrence: None)
  Receive Date: 20120403
  Receipt Date: 20120320
  Transmission Date: 20120825
  Serious: Yes (Hospitalization)
  Sender: FDA-Public Use
  Company Number: GB-1191240

PATIENT
  Age: 52 Year
  Sex: Male

DRUGS (8)
  1. TRAVATAN [Suspect]
     Indication: GLAUCOMA
     Dosage: (1 DF QD OPHTHALMIC)
     Route: 047
     Dates: start: 20090313, end: 20120213
  2. SIMVASTATIN [Concomitant]
  3. TRAVATAN [Suspect]
     Indication: GLAUCOMA
     Dosage: (1 DF QD OPHTHALMIC)
     Route: 047
     Dates: start: 20090313, end: 20120213
  4. HUMALOG [Concomitant]
  5. IRBESARTAN [Concomitant]
  6. LEVOTHYROXINE SODIUM [Concomitant]
  7. HUMAN ACTRAPID [Concomitant]
  8. OMEPRAZOLE [Concomitant]

REACTIONS (2)
  - ATRIOVENTRICULAR BLOCK [None]
  - BRADYCARDIA [None]
